FAERS Safety Report 22675246 (Version 2)
Quarter: 2024Q3

REPORT INFORMATION
  Report Type: Report from Study
  Country: IL (occurrence: IL)
  Receive Date: 20230706
  Receipt Date: 20240809
  Transmission Date: 20241017
  Serious: Yes (Death, Other)
  Sender: ROCHE
  Company Number: IL-ROCHE-3377536

PATIENT

DRUGS (2)
  1. RITUXIMAB [Suspect]
     Active Substance: RITUXIMAB
     Indication: Follicular lymphoma
     Route: 065
  2. OBINUTUZUMAB [Suspect]
     Active Substance: OBINUTUZUMAB
     Indication: Follicular lymphoma
     Route: 042

REACTIONS (25)
  - Skin infection [Unknown]
  - Sinusitis [Unknown]
  - Upper respiratory tract infection [Unknown]
  - Urinary tract infection [Unknown]
  - Gastroenteritis [Unknown]
  - Herpes simplex [Unknown]
  - Varicella zoster virus infection [Unknown]
  - Anaemia [Unknown]
  - Thrombocytopenia [Unknown]
  - Leukopenia [Unknown]
  - Lymphopenia [Unknown]
  - Hypogammaglobulinaemia [Unknown]
  - Nausea [Unknown]
  - Vomiting [Unknown]
  - Diarrhoea [Unknown]
  - Constipation [Unknown]
  - Mucosal inflammation [Unknown]
  - Rash [Unknown]
  - Paraesthesia [Unknown]
  - Pneumonitis [Unknown]
  - Pyrexia [Unknown]
  - Febrile neutropenia [Fatal]
  - Pneumonia [Fatal]
  - Infusion related reaction [Unknown]
  - COVID-19 [Unknown]
